FAERS Safety Report 19158203 (Version 1)
Quarter: 2021Q2

REPORT INFORMATION
  Report Type: Spontaneous
  Country: US (occurrence: US)
  Receive Date: 20210420
  Receipt Date: 20210420
  Transmission Date: 20210717
  Serious: Yes (Hospitalization)
  Sender: FDA-Public Use
  Company Number: US-BAYER-2021-122582

PATIENT
  Age: 42 Year
  Sex: Female

DRUGS (5)
  1. PFIZER?BIONTECH COVID?19 VACCINE [Suspect]
     Active Substance: TOZINAMERAN
     Dosage: UNK UNK, ONCE
     Dates: start: 20210401, end: 20210401
  2. MESALAMINE. [Concomitant]
     Active Substance: MESALAMINE
     Dosage: 2 DF, QD
  3. DIPHENHYDRAMINE HYDROCHLORIDE. [Concomitant]
     Active Substance: DIPHENHYDRAMINE HYDROCHLORIDE
     Indication: BACK PAIN
     Dosage: UNK
     Dates: start: 20210401
  4. ALEVE [Suspect]
     Active Substance: NAPROXEN SODIUM
     Indication: BACK PAIN
     Dosage: UNK
     Dates: start: 20210401
  5. TYLENOL EXTRA STRENGTH [Concomitant]
     Active Substance: ACETAMINOPHEN
     Indication: BACK PAIN
     Dosage: UNK
     Dates: start: 20210401

REACTIONS (6)
  - Drug ineffective [None]
  - Vomiting [Recovering/Resolving]
  - Abdominal pain upper [Recovering/Resolving]
  - Cholecystectomy [Recovering/Resolving]
  - Diarrhoea [Recovering/Resolving]
  - Chills [Recovering/Resolving]

NARRATIVE: CASE EVENT DATE: 20210401
